FAERS Safety Report 21890822 (Version 4)
Quarter: 2023Q1

REPORT INFORMATION
  Report Type: Report from Study
  Country: US (occurrence: US)
  Receive Date: 20230120
  Receipt Date: 20230220
  Transmission Date: 20230417
  Serious: Yes (Hospitalization)
  Sender: FDA-Public Use
  Company Number: US-AMRYT PHARMACEUTICALS DAC-AEGR006217

PATIENT
  Age: 56 Year
  Sex: Female
  Weight: 45.578 kg

DRUGS (60)
  1. METRELEPTIN [Suspect]
     Active Substance: METRELEPTIN
     Indication: Lipodystrophy acquired
     Dosage: 2.5 MILLIGRAM, QD
     Route: 058
     Dates: start: 20210917, end: 20210920
  2. METRELEPTIN [Suspect]
     Active Substance: METRELEPTIN
     Indication: Acquired generalised lipodystrophy
  3. INSULIN GLARGINE [Concomitant]
     Active Substance: INSULIN GLARGINE
     Indication: Diabetes mellitus
     Dosage: 20 INTERNATIONAL UNIT, QD PM
     Route: 058
     Dates: start: 20210317, end: 20211117
  4. INSULIN GLARGINE [Concomitant]
     Active Substance: INSULIN GLARGINE
     Dosage: 20 INTERNATIONAL UNIT, TID W/MEALS
     Dates: start: 20210317, end: 20210317
  5. INSULIN GLARGINE [Concomitant]
     Active Substance: INSULIN GLARGINE
     Dosage: 24 INTERNATIONAL UNIT, QD PM
     Route: 058
     Dates: start: 20211118, end: 20220725
  6. INSULIN GLARGINE [Concomitant]
     Active Substance: INSULIN GLARGINE
     Dosage: 25 IU INTERNATIONAL UNIT(S), QD PM
     Route: 058
     Dates: start: 20220726
  7. INSULIN ASPART [Concomitant]
     Active Substance: INSULIN ASPART
     Indication: Diabetes mellitus
     Dosage: 5 INTERNATIONAL UNIT, TID W/ MEALS, 150-200:2 UNITS; 201-250: 4 UNITS; 251-300: 6 UNITS; 301-350: 8
     Route: 058
     Dates: start: 20210323, end: 20220315
  8. INSULIN ASPART [Concomitant]
     Active Substance: INSULIN ASPART
     Dosage: 6 INTERNATIONAL UNIT, TID
     Route: 058
     Dates: start: 20220316
  9. INSULIN ASPART [Concomitant]
     Active Substance: INSULIN ASPART
     Dosage: 20 INTERNATIONAL UNIT, QD PM
     Route: 058
     Dates: start: 20210317
  10. AMITRIPTYLINE [Concomitant]
     Active Substance: AMITRIPTYLINE
     Indication: Depression
     Dosage: 50 MILLIGRAM, QD PM
     Route: 048
     Dates: start: 2018, end: 20210702
  11. AMITRIPTYLINE [Concomitant]
     Active Substance: AMITRIPTYLINE
     Dosage: 50 MILLIGRAM, QD PM
     Route: 048
     Dates: start: 20210702
  12. COLCHICINE [Concomitant]
     Active Substance: COLCHICINE
     Indication: Gout
     Dosage: 0.6 MILLIGRAM, QD
     Route: 048
     Dates: start: 2017, end: 20211213
  13. COLCHICINE [Concomitant]
     Active Substance: COLCHICINE
     Dosage: 0.3 MILLIGRAM, PRN
     Route: 048
     Dates: start: 20220713
  14. CITALOPRAM [Concomitant]
     Active Substance: CITALOPRAM HYDROBROMIDE
     Indication: Depression
     Dosage: 25 MILLIGRAM, QD
     Route: 048
     Dates: start: 2018, end: 20211213
  15. CITALOPRAM [Concomitant]
     Active Substance: CITALOPRAM HYDROBROMIDE
     Dosage: 30 MILLIGRAM, QD
     Route: 048
     Dates: start: 20211220, end: 20211220
  16. CITALOPRAM [Concomitant]
     Active Substance: CITALOPRAM HYDROBROMIDE
     Dosage: 20 MILLIGRAM, QD PRN
     Route: 048
     Dates: start: 20211224
  17. VITAMIN B12 [Concomitant]
     Active Substance: CYANOCOBALAMIN
     Indication: Anaemia vitamin B12 deficiency
     Dosage: 1 GRAM MONTHLY
     Route: 030
     Dates: start: 2018
  18. LEVOTHYROXINE [Concomitant]
     Active Substance: LEVOTHYROXINE
     Indication: Hypothyroidism
     Dosage: 250 UG, QD
     Route: 048
     Dates: start: 2010, end: 20220406
  19. LEVOTHYROXINE [Concomitant]
     Active Substance: LEVOTHYROXINE
     Dosage: 200 UG, QD
     Route: 048
     Dates: start: 20220407
  20. ONDANSETRON [Concomitant]
     Active Substance: ONDANSETRON
     Indication: Prophylaxis of nausea and vomiting
     Dosage: 4 MILLIGRAM, PRN
     Route: 048
     Dates: start: 2018
  21. ONDANSETRON [Concomitant]
     Active Substance: ONDANSETRON
     Indication: Vomiting
     Dosage: 4 MILLIGRAM, PRN, Q6HRS
     Dates: start: 20211214, end: 20211224
  22. ONDANSETRON [Concomitant]
     Active Substance: ONDANSETRON
     Indication: Urinary bladder rupture
  23. VITAMINS [Concomitant]
     Active Substance: VITAMINS
     Indication: Supplementation therapy
     Dosage: 2 TABLET, QD PM
     Route: 048
     Dates: start: 2010
  24. MELATONIN [Concomitant]
     Active Substance: MELATONIN
     Indication: Insomnia
     Dosage: 10 MILLIGRAM, QD PM
     Route: 048
     Dates: start: 201002
  25. HYDROXYZINE HYDROCHLORIDE [Concomitant]
     Active Substance: HYDROXYZINE HYDROCHLORIDE
     Indication: Anxiety
     Dosage: 25 MILLIGRAM 8-12 HRS PRN
     Route: 048
     Dates: start: 2018
  26. AMLODIPINE [Concomitant]
     Active Substance: AMLODIPINE BESYLATE
     Indication: Hypertension
     Dosage: 5 MILLIGRAM, QD
     Route: 048
     Dates: start: 20210320, end: 20220124
  27. AMLODIPINE [Concomitant]
     Active Substance: AMLODIPINE BESYLATE
     Dosage: 2.5 MILLIGRAM, QD
     Route: 048
     Dates: start: 20220124
  28. GABAPENTIN [Concomitant]
     Active Substance: GABAPENTIN
     Indication: Neuropathy peripheral
     Dosage: 300 MILLIGRAM, TID
     Route: 048
     Dates: start: 20210323, end: 20211223
  29. GABAPENTIN [Concomitant]
     Active Substance: GABAPENTIN
     Dosage: 300 MILLIGRAM, TID
     Route: 048
     Dates: start: 20210323
  30. GABAPENTIN [Concomitant]
     Active Substance: GABAPENTIN
     Dosage: 100 MILLIGRAM, QD
     Route: 048
     Dates: start: 20211224, end: 20220120
  31. GABAPENTIN [Concomitant]
     Active Substance: GABAPENTIN
     Dosage: 300 MILLIGRAM, QD
     Route: 048
     Dates: start: 20220121, end: 20220123
  32. GABAPENTIN [Concomitant]
     Active Substance: GABAPENTIN
     Dosage: 100 MILLIGRAM, BID
     Route: 048
     Dates: start: 20220124
  33. GABAPENTIN [Concomitant]
     Active Substance: GABAPENTIN
     Dosage: 300 MILLIGRAM, QD PM
     Route: 048
     Dates: start: 20220124
  34. LISINOPRIL [Concomitant]
     Active Substance: LISINOPRIL
     Indication: Hypertension
     Dosage: 10 MILLIGRAM, QD
     Route: 048
     Dates: start: 20210406, end: 20211213
  35. LISINOPRIL [Concomitant]
     Active Substance: LISINOPRIL
     Dosage: 5 MILLIGRAM, QD
     Route: 048
     Dates: start: 20220124
  36. POTASSIUM [Concomitant]
     Active Substance: POTASSIUM
     Indication: Hypokalaemia
     Dosage: 60 MEQ
     Route: 048
     Dates: start: 20210416, end: 20211213
  37. POTASSIUM [Concomitant]
     Active Substance: POTASSIUM
     Dosage: 60 MEQ, QD
     Route: 048
     Dates: start: 20220120, end: 20220123
  38. POTASSIUM [Concomitant]
     Active Substance: POTASSIUM
     Dosage: 20 MEQ, TID
     Route: 048
     Dates: start: 20220207
  39. POTASSIUM [Concomitant]
     Active Substance: POTASSIUM
     Dosage: 60 MEQ
     Dates: start: 20210416
  40. TRAMADOL [Concomitant]
     Active Substance: TRAMADOL
     Indication: Gout
     Dosage: 100 MILLIGRAM, BID
     Route: 048
     Dates: start: 20210520
  41. TRAMADOL [Concomitant]
     Active Substance: TRAMADOL
     Indication: Pain
  42. ALLOPURINOL [Concomitant]
     Active Substance: ALLOPURINOL
     Indication: Gout
     Dosage: 450 MILLIGRAM, QD
     Dates: start: 20210511, end: 20211223
  43. ALLOPURINOL [Concomitant]
     Active Substance: ALLOPURINOL
     Dosage: 100 MILLIGRAM, QD
     Route: 048
     Dates: start: 20211224, end: 20220516
  44. ALLOPURINOL [Concomitant]
     Active Substance: ALLOPURINOL
     Dosage: 200 MILLIGRAM, QD
     Dates: start: 20220517
  45. MAGNESIUM [Concomitant]
     Active Substance: MAGNESIUM
     Indication: Magnesium deficiency
     Dosage: 500 MILLIGRAM, TID
     Route: 048
     Dates: start: 20210629
  46. MAGNESIUM [Concomitant]
     Active Substance: MAGNESIUM
     Dosage: 500 MILLIGRAM, QID
     Route: 048
     Dates: start: 20210629
  47. CALCIUM ACETATE [Concomitant]
     Active Substance: CALCIUM ACETATE
     Indication: Hypophosphataemia
     Dosage: 667 MILLIGRAM, TID
     Route: 048
     Dates: start: 20210923
  48. OXYBUTYNIN [Concomitant]
     Active Substance: OXYBUTYNIN
     Indication: Bladder spasm
     Dosage: 10 MILLIGRAM, QD
     Route: 048
     Dates: start: 20211230
  49. OXYBUTYNIN [Concomitant]
     Active Substance: OXYBUTYNIN
     Dosage: 5 MILLIGRAM, SINGLE
     Route: 048
     Dates: start: 20211219, end: 20211219
  50. BACLOFEN [Concomitant]
     Active Substance: BACLOFEN
     Indication: Muscle spasms
     Dosage: 5 MILLIGRAM, TID
     Route: 048
     Dates: start: 20201007, end: 20211212
  51. BACLOFEN [Concomitant]
     Active Substance: BACLOFEN
     Dosage: 2.5 MILLIGRAM, TID
     Route: 048
     Dates: start: 20211215, end: 20211224
  52. BACLOFEN [Concomitant]
     Active Substance: BACLOFEN
     Dosage: 5 MILLIGRAM, TID
     Route: 048
     Dates: start: 20211224, end: 20220228
  53. BACLOFEN [Concomitant]
     Active Substance: BACLOFEN
     Dosage: 4 MILLIGRAM, 2 TAB DIN, 1 TAB W/BREAKFAST AND LUNCH
     Route: 048
     Dates: start: 20220316
  54. PHENAZOPYRIDINE [Concomitant]
     Active Substance: PHENAZOPYRIDINE
     Indication: Bladder spasm
     Dosage: 200 MILLIGRAM, TID
     Route: 048
     Dates: start: 20220715
  55. TROSPIUM [Concomitant]
     Active Substance: TROSPIUM
     Indication: Bladder spasm
     Dosage: 20 MILLIGRAM, BID
     Route: 048
     Dates: start: 20220415, end: 20221121
  56. TROSPIUM [Concomitant]
     Active Substance: TROSPIUM
     Dosage: 20 MILLIGRAM, BID
     Route: 048
     Dates: start: 20220415
  57. CHOLECALCIFEROL [Concomitant]
     Active Substance: CHOLECALCIFEROL
     Indication: Vitamin supplementation
     Dosage: 50000 IU INTERNATIONAL UNIT(S), ONCE A WEEK
     Route: 048
     Dates: start: 20220920
  58. NYSTATIN [Concomitant]
     Active Substance: NYSTATIN
     Indication: Fungal infection
     Dosage: 999999.9 UNITS PER GRAM, BID
     Route: 061
     Dates: start: 20210316
  59. DIPHENOXYLATE HCL W/ ATROPINE SULFATE [Concomitant]
     Indication: Diarrhoea
     Dosage: 1 TABLET, BID
     Route: 048
     Dates: start: 20210316
  60. CLOBETASOL [Concomitant]
     Active Substance: CLOBETASOL
     Indication: Pruritus
     Dosage: UNK, BID
     Route: 061
     Dates: start: 20211008

REACTIONS (3)
  - Osteomyelitis [Recovered/Resolved with Sequelae]
  - Hand fracture [Recovered/Resolved with Sequelae]
  - Fall [Recovered/Resolved with Sequelae]

NARRATIVE: CASE EVENT DATE: 20221219
